FAERS Safety Report 19386221 (Version 1)
Quarter: 2021Q2

REPORT INFORMATION
  Report Type: Report from Study
  Country: KR (occurrence: KR)
  Receive Date: 20210608
  Receipt Date: 20210608
  Transmission Date: 20210717
  Serious: Yes (Death, Other)
  Sender: FDA-Public Use
  Company Number: KR-AUROBINDO-AUR-APL-2019-066897

PATIENT
  Age: 74 Year
  Sex: Male

DRUGS (8)
  1. PRALATREXATE [Suspect]
     Active Substance: PRALATREXATE
     Indication: ANGIOIMMUNOBLASTIC T-CELL LYMPHOMA STAGE III
  2. VELCADE [Suspect]
     Active Substance: BORTEZOMIB
     Indication: T-CELL LYMPHOMA RECURRENT
     Dosage: 1.3 MILLIGRAM/SQ. METER, EVERY WEEK
     Route: 042
  3. VELCADE [Suspect]
     Active Substance: BORTEZOMIB
     Indication: T-CELL LYMPHOMA REFRACTORY
  4. PRALATREXATE [Suspect]
     Active Substance: PRALATREXATE
     Indication: T-CELL LYMPHOMA RECURRENT
  5. LEUCOVORIN. [Concomitant]
     Active Substance: LEUCOVORIN
     Indication: MUCOSAL INFLAMMATION
     Dosage: 45 MILLIGRAM, DAILY
     Route: 065
  6. VELCADE [Suspect]
     Active Substance: BORTEZOMIB
     Indication: ANGIOIMMUNOBLASTIC T-CELL LYMPHOMA STAGE III
  7. VITAMIN B12 [Concomitant]
     Active Substance: CYANOCOBALAMIN
     Indication: MUCOSAL INFLAMMATION
     Dosage: 1 MILLIGRAM
     Route: 030
  8. PRALATREXATE [Suspect]
     Active Substance: PRALATREXATE
     Indication: T-CELL LYMPHOMA REFRACTORY
     Dosage: 15 MILLIGRAM/SQ. METER, EVERY WEEK
     Route: 042

REACTIONS (10)
  - Herpes zoster [Unknown]
  - Off label use [Fatal]
  - Decreased appetite [Unknown]
  - Disease progression [Unknown]
  - Thrombocytopenia [Unknown]
  - Angioimmunoblastic T-cell lymphoma [Fatal]
  - Mucosal inflammation [Unknown]
  - Neutropenia [Unknown]
  - Neuropathy peripheral [Unknown]
  - Infection [Fatal]
